FAERS Safety Report 15553468 (Version 1)
Quarter: 2018Q4

REPORT INFORMATION
  Report Type: Report from Study
  Country: US (occurrence: US)
  Receive Date: 20181026
  Receipt Date: 20181026
  Transmission Date: 20190205
  Serious: Yes (Other)
  Sender: FDA-Public Use
  Company Number: US-CIPLA LTD.-2018US22054

PATIENT

DRUGS (6)
  1. PANITUMUMAB [Suspect]
     Active Substance: PANITUMUMAB
     Indication: INFLAMMATORY CARCINOMA OF THE BREAST
     Dosage: 2.5 MG/KG, ON DAY 1, 1 WEEK LATER, THE PATIENT RECEIVED 4 CYCLES
     Route: 065
  2. FLUOROURACIL. [Suspect]
     Active Substance: FLUOROURACIL
     Indication: INFLAMMATORY CARCINOMA OF THE BREAST
     Dosage: 500 MG/M2, WEEKLY FOR 3 WEEKS, 4 CYCLES
     Route: 065
  3. EPIRUBICIN [Suspect]
     Active Substance: EPIRUBICIN
     Indication: INFLAMMATORY CARCINOMA OF THE BREAST
     Dosage: 100 MG/M2, WEEKLY FOR 3 WEEKS, 4 CYCLES
     Route: 065
  4. CARBOPLATIN. [Suspect]
     Active Substance: CARBOPLATIN
     Indication: INFLAMMATORY CARCINOMA OF THE BREAST
     Dosage: 2.0 AUC, PIGGY BACK, WEEKLY FOR 3 WEEKS
     Route: 042
  5. PACLITAX NAB [Suspect]
     Active Substance: PACLITAXEL
     Indication: INFLAMMATORY CARCINOMA OF THE BREAST
     Dosage: 5 MG/ML INTRAVENOUS PIGGYBACK 100 MG/M2 4 CYCLES
     Route: 042
  6. CYCLOPHOSPHAMIDE. [Suspect]
     Active Substance: CYCLOPHOSPHAMIDE
     Indication: INFLAMMATORY CARCINOMA OF THE BREAST
     Dosage: 500 MG/M2, WEEKLY FOR 3 WEEKS, 4 CYCLES
     Route: 065

REACTIONS (1)
  - Breast cancer recurrent [Unknown]
